FAERS Safety Report 11376933 (Version 5)
Quarter: 2016Q1

REPORT INFORMATION
  Report Type: Report from Study
  Country: US (occurrence: US)
  Receive Date: 20150813
  Receipt Date: 20160129
  Transmission Date: 20160525
  Serious: Yes (Other)
  Sender: FDA-Public Use
  Company Number: US-ACTELION-A-NJ2015-122466

PATIENT
  Age: 72 Year
  Sex: Female

DRUGS (3)
  1. OXYGEN. [Concomitant]
     Active Substance: OXYGEN
     Dosage: 2 L/MIN, UNK
  2. MACITENTAN [Suspect]
     Active Substance: MACITENTAN
     Indication: PULMONARY ARTERIAL HYPERTENSION
     Dosage: 10 MG, QD
     Route: 048
     Dates: start: 20140103
  3. OXYGEN. [Concomitant]
     Active Substance: OXYGEN
     Dosage: 2.5 L/MIN, UNK

REACTIONS (10)
  - Seizure [Unknown]
  - Ear pain [Unknown]
  - Tremor [Unknown]
  - Respiratory tract infection [Unknown]
  - Confusional state [Unknown]
  - Syncope [Unknown]
  - Ear infection [Unknown]
  - Hypoacusis [Unknown]
  - Headache [Unknown]
  - Dyspnoea [Unknown]

NARRATIVE: CASE EVENT DATE: 20150726
